FAERS Safety Report 7656201-2 (Version None)
Quarter: 2011Q3

REPORT INFORMATION
  Report Type: 
  Country: None (occurrence: None)
  Receive Date: 20110804
  Receipt Date: 20110721
  Transmission Date: 20111222
  Serious: Yes (Hospitalization)
  Sender: FDA-Public Use
  Company Number: FR-ARROW GEN-2011-11168

PATIENT
  Sex: Male

DRUGS (5)
  1. SIMVASTATIN [Suspect]
     Indication: HYPERCHOLESTEROLAEMIA
     Dosage: 20 MG, DAILY
     Route: 048
     Dates: start: 20110416, end: 20110506
  2. TRIATEC                            /00885601/ [Concomitant]
     Indication: MYOCARDIAL ISCHAEMIA
     Dosage: 1.25 MG, DAILY
     Route: 048
     Dates: start: 20110415, end: 20110507
  3. AUGMENTIN '250' [Suspect]
     Indication: BRONCHITIS
     Dosage: UNK
     Route: 048
     Dates: start: 20110331, end: 20110408
  4. ARIXTRA [Suspect]
     Indication: ARTERIOGRAM CORONARY
     Dosage: 2.5 MG/0.5ML, DAILY
     Route: 048
     Dates: start: 20110415, end: 20110416
  5. PLAVIX [Suspect]
     Indication: ARTERIOGRAM CORONARY
     Dosage: 75 MG, DAILY
     Route: 048
     Dates: start: 20110415, end: 20110416

REACTIONS (1)
  - DRUG RASH WITH EOSINOPHILIA AND SYSTEMIC SYMPTOMS [None]
